FAERS Safety Report 19044764 (Version 5)
Quarter: 2022Q3

REPORT INFORMATION
  Report Type: Report from Study
  Country: JP (occurrence: JP)
  Receive Date: 20210323
  Receipt Date: 20220714
  Transmission Date: 20221026
  Serious: Yes (Hospitalization)
  Sender: FDA-Public Use
  Company Number: JP-GLAXOSMITHKLINE-JP2021JPN040965

PATIENT

DRUGS (18)
  1. BELIMUMAB [Suspect]
     Active Substance: BELIMUMAB
     Indication: Systemic lupus erythematosus
     Dosage: 200 MG
     Route: 058
     Dates: start: 20190902, end: 20200217
  2. BELIMUMAB [Suspect]
     Active Substance: BELIMUMAB
     Dosage: 200 MG
     Route: 058
     Dates: start: 20200225, end: 20200824
  3. RINDERON TABLET [Concomitant]
     Indication: Systemic lupus erythematosus
     Dosage: 0.5 MG, 1D
     Route: 048
     Dates: start: 20190902, end: 20200308
  4. PLAQUENIL [Concomitant]
     Active Substance: HYDROXYCHLOROQUINE SULFATE
     Indication: Systemic lupus erythematosus
  5. TOPIRAMATE [Concomitant]
     Active Substance: TOPIRAMATE
  6. RISPERDAL [Concomitant]
     Active Substance: RISPERIDONE
  7. TRICLOFOS SODIUM [Concomitant]
     Active Substance: TRICLOFOS SODIUM
  8. FYCOMPA [Concomitant]
     Active Substance: PERAMPANEL
  9. HERBALS [Concomitant]
     Active Substance: HERBALS
  10. ZONISAMIDE [Concomitant]
     Active Substance: ZONISAMIDE
  11. GASTER [Concomitant]
     Active Substance: FAMOTIDINE
     Indication: Prophylaxis against gastrointestinal ulcer
  12. DIAZEPAM [Concomitant]
     Active Substance: DIAZEPAM
  13. SULFAMETHOXAZOLE\TRIMETHOPRIM [Concomitant]
     Active Substance: SULFAMETHOXAZOLE\TRIMETHOPRIM
     Indication: Infection prophylaxis
  14. CELLCEPT [Concomitant]
     Active Substance: MYCOPHENOLATE MOFETIL
     Indication: Systemic lupus erythematosus
  15. PREDONINE [Concomitant]
     Active Substance: PREDNISOLONE
     Indication: Systemic lupus erythematosus
     Dosage: 3 MG
     Route: 048
     Dates: start: 20200309, end: 20200402
  16. PREDONINE [Concomitant]
     Active Substance: PREDNISOLONE
     Dosage: 2 MG
     Route: 048
     Dates: start: 20200403, end: 20200430
  17. PREDONINE [Concomitant]
     Active Substance: PREDNISOLONE
     Dosage: 1 MG
     Route: 048
     Dates: start: 20200501, end: 20200528
  18. VIMPAT [Concomitant]
     Active Substance: LACOSAMIDE

REACTIONS (4)
  - COVID-19 [Recovered/Resolved]
  - Pyrexia [Recovered/Resolved]
  - Product use issue [Unknown]
  - Off label use [Unknown]

NARRATIVE: CASE EVENT DATE: 20190902
